FAERS Safety Report 6644339-8 (Version None)
Quarter: 2010Q1

REPORT INFORMATION
  Report Type: 
  Country: None (occurrence: None)
  Receive Date: 20100322
  Receipt Date: 20100317
  Transmission Date: 20100710
  Serious: Yes (Death)
  Sender: FDA-Public Use
  Company Number: PHHY2010JP16694

PATIENT
  Sex: Female

DRUGS (4)
  1. DIOVAN [Suspect]
     Indication: HYPERTENSION
     Dosage: 80 MG, QD
     Route: 048
     Dates: start: 20081127, end: 20090607
  2. ASPIRIN [Concomitant]
     Dosage: 100 MG
     Route: 048
  3. PLAVIX [Concomitant]
     Dosage: 75 MG
     Route: 048
  4. LIPITOR [Concomitant]
     Dosage: 10 MG
     Route: 048

REACTIONS (1)
  - DEATH [None]
